FAERS Safety Report 9587894 (Version 3)
Quarter: 2013Q4

REPORT INFORMATION
  Report Type: Report from Study
  Country: US (occurrence: US)
  Receive Date: 20131003
  Receipt Date: 20131018
  Transmission Date: 20140711
  Serious: Yes (Other)
  Sender: FDA-Public Use
  Company Number: US-GLAXOSMITHKLINE-A1043970A

PATIENT
  Age: 14 Year
  Sex: Female
  Weight: 35.7 kg

DRUGS (11)
  1. NELARABINE [Suspect]
     Indication: NON-HODGKIN^S LYMPHOMA
     Dosage: 650MGM2 CYCLIC
     Route: 042
     Dates: start: 20130311, end: 20130426
  2. METHOTREXATE [Suspect]
     Indication: NON-HODGKIN^S LYMPHOMA
     Route: 037
  3. CYCLOPHOSPHAMIDE [Suspect]
     Indication: NON-HODGKIN^S LYMPHOMA
     Dosage: 1000MGM2 CYCLIC
     Route: 042
  4. CYTARABINE [Suspect]
     Indication: NON-HODGKIN^S LYMPHOMA
     Dosage: 75MGM2 CYCLIC
  5. MERCAPTOPURINE [Suspect]
     Indication: NON-HODGKIN^S LYMPHOMA
     Dosage: 60MGM2 CYCLIC
     Route: 048
  6. VINCRISTINE [Suspect]
     Indication: NON-HODGKIN^S LYMPHOMA
     Dosage: 1.5MGM2 CYCLIC
     Route: 042
  7. PEG-ASPARAGINASE [Suspect]
     Indication: NON-HODGKIN^S LYMPHOMA
     Route: 030
  8. DEXAMETHASONE [Suspect]
     Indication: NON-HODGKIN^S LYMPHOMA
  9. DOXORUBICIN HYDROCHLORIDE [Suspect]
     Indication: NON-HODGKIN^S LYMPHOMA
  10. THIOGUANINE [Suspect]
     Indication: NON-HODGKIN^S LYMPHOMA
  11. RADIATION [Concomitant]
     Indication: NON-HODGKIN^S LYMPHOMA

REACTIONS (1)
  - Osteonecrosis [Not Recovered/Not Resolved]
